FAERS Safety Report 5288608-5 (Version None)
Quarter: 2007Q1

REPORT INFORMATION
  Report Type: 
  Country: None (occurrence: None)
  Receive Date: 20070330
  Receipt Date: 20070319
  Transmission Date: 20070707
  Serious: Yes (Disabling)
  Sender: FDA-Public Use
  Company Number: 2007RR-06458

PATIENT
  Age: 76 Year
  Sex: Female
  Weight: 70 kg

DRUGS (3)
  1. SIMVASTATIN [Suspect]
     Indication: BLOOD CHOLESTEROL INCREASED
     Dosage: 1 DF, QD, ORAL
     Route: 048
     Dates: start: 20060701, end: 20061101
  2. ASPIRIN [Concomitant]
  3. METFORMIN HYDROCHLORIDE (METFORMIN) [Concomitant]

REACTIONS (5)
  - EYE SWELLING [None]
  - PAIN IN EXTREMITY [None]
  - RASH ERYTHEMATOUS [None]
  - SKIN EXFOLIATION [None]
  - SWELLING FACE [None]
